FAERS Safety Report 17185218 (Version 1)
Quarter: 2019Q4

REPORT INFORMATION
  Report Type: Spontaneous
  Country: US (occurrence: US)
  Receive Date: 20191220
  Receipt Date: 20191220
  Transmission Date: 20200122
  Serious: No
  Sender: FDA-Public Use
  Company Number: US-THERAPEUTICSMD-2019TMD03011

PATIENT
  Sex: Female

DRUGS (1)
  1. IMVEXXY [Suspect]
     Active Substance: ESTRADIOL
     Dosage: UNK, 2X/WEEK (MONDAYS AND THURSDAYS)
     Dates: start: 201905

REACTIONS (4)
  - Off label use [Not Recovered/Not Resolved]
  - Intentional dose omission [Recovered/Resolved]
  - Impaired healing [Unknown]
  - Unevaluable event [Unknown]

NARRATIVE: CASE EVENT DATE: 2019
